FAERS Safety Report 14781314 (Version 1)
Quarter: 2018Q2

REPORT INFORMATION
  Report Type: Spontaneous
  Country: US (occurrence: US)
  Receive Date: 20180419
  Receipt Date: 20180419
  Transmission Date: 20180711
  Serious: No
  Sender: FDA-Public Use
  Company Number: US-ASTRAZENECA-2018SE37945

PATIENT
  Sex: Female

DRUGS (1)
  1. PULMICORT FLEXHALER [Suspect]
     Active Substance: BUDESONIDE
     Indication: ILL-DEFINED DISORDER
     Route: 055

REACTIONS (4)
  - Product use in unapproved indication [Not Recovered/Not Resolved]
  - Lung disorder [Recovering/Resolving]
  - Malaise [Recovered/Resolved]
  - Off label use [Not Recovered/Not Resolved]
